FAERS Safety Report 5715145-3 (Version None)
Quarter: 2008Q2

REPORT INFORMATION
  Report Type: 
  Country: None (occurrence: None)
  Receive Date: 20080423
  Receipt Date: 20080327
  Transmission Date: 20081010
  Serious: No
  Sender: FDA-Public Use
  Company Number: US-BOEHRINGER INGELHEIM GMBH, GERMANY-2008-BP-04874PF

PATIENT
  Sex: Male

DRUGS (3)
  1. SPIRIVA [Suspect]
     Indication: CHRONIC OBSTRUCTIVE PULMONARY DISEASE
     Route: 055
  2. ADVAIR HFA [Concomitant]
     Dates: start: 20080227, end: 20080302
  3. THEOPHYLLINE [Concomitant]
     Route: 048
     Dates: start: 20080227

REACTIONS (2)
  - MOUTH ULCERATION [None]
  - ORAL PAIN [None]
